FAERS Safety Report 16472993 (Version 1)
Quarter: 2019Q2

REPORT INFORMATION
  Report Type: Report from Study
  Country: US (occurrence: US)
  Receive Date: 20190625
  Receipt Date: 20190625
  Transmission Date: 20190711
  Serious: Yes (Disabling, Other)
  Sender: FDA-Public Use
  Company Number: US-SA-2019SA137403

PATIENT
  Age: 42 Year
  Sex: Female

DRUGS (3)
  1. LEFLUNOMIDE. [Suspect]
     Active Substance: LEFLUNOMIDE
     Dosage: UNK UNK, UNK
     Route: 065
  2. ALEMTUZUMAB [Suspect]
     Active Substance: ALEMTUZUMAB
     Indication: MULTIPLE SCLEROSIS
     Dosage: UNK UNK, UNK
     Route: 041
  3. OCREVUS [Concomitant]
     Active Substance: OCRELIZUMAB
     Dosage: UNK UNK, UNK
     Route: 065

REACTIONS (7)
  - Viral load [Not Recovered/Not Resolved]
  - Disability [Not Recovered/Not Resolved]
  - Autoimmune haemolytic anaemia [Unknown]
  - Progressive multiple sclerosis [Not Recovered/Not Resolved]
  - Immune thrombocytopenic purpura [Not Recovered/Not Resolved]
  - Autoimmune disorder [Unknown]
  - Multiple sclerosis [Not Recovered/Not Resolved]
